FAERS Safety Report 9374409 (Version 2)
Quarter: 2016Q4

REPORT INFORMATION
  Report Type: Spontaneous
  Country: US (occurrence: US)
  Receive Date: 20130628
  Receipt Date: 20161019
  Transmission Date: 20170207
  Serious: Yes (Hospitalization, Other)
  Sender: FDA-Public Use
  Company Number: US-ROCHE-1242049

PATIENT
  Sex: Female

DRUGS (1)
  1. ACCUTANE [Suspect]
     Active Substance: ISOTRETINOIN
     Indication: ACNE
     Route: 065
     Dates: start: 1990, end: 1990

REACTIONS (5)
  - Injury [Unknown]
  - Depression [Unknown]
  - Diverticulitis [Unknown]
  - Large intestine perforation [Unknown]
  - Inflammatory bowel disease [Unknown]
